FAERS Safety Report 18164381 (Version 1)
Quarter: 2020Q3

REPORT INFORMATION
  Report Type: Spontaneous
  Country: US (occurrence: US)
  Receive Date: 20200818
  Receipt Date: 20200818
  Transmission Date: 20201103
  Serious: Yes (Other)
  Sender: FDA-Public Use
  Company Number: US-PFIZER INC-2020061049

PATIENT
  Age: 85 Year
  Sex: Female

DRUGS (1)
  1. PREMARIN [Suspect]
     Active Substance: ESTROGENS, CONJUGATED
     Dosage: UNK, AS NEEDED (SHE DOESN^T USE THE PRODUCT REGULARLY, ONLY AS NEEDED)

REACTIONS (4)
  - Hypoacusis [Unknown]
  - Product use issue [Unknown]
  - Off label use [Unknown]
  - Glaucoma [Unknown]
